FAERS Safety Report 4572447-4 (Version None)
Quarter: 2005Q1

REPORT INFORMATION
  Report Type: 
  Country: None (occurrence: None)
  Receive Date: 20050207
  Receipt Date: 20050131
  Transmission Date: 20050727
  Serious: Yes (Hospitalization)
  Sender: FDA-Public Use
  Company Number: BG-BRISTOL-MYERS SQUIBB COMPANY-12843132

PATIENT
  Age: 44 Year
  Sex: Female

DRUGS (3)
  1. AMIKACIN [Suspect]
     Indication: LOBAR PNEUMONIA
     Route: 042
     Dates: start: 20041203
  2. MAXIPIME [Suspect]
     Indication: LOBAR PNEUMONIA
     Route: 042
     Dates: start: 20041130
  3. TAVANIC [Suspect]
     Indication: LOBAR PNEUMONIA
     Dosage: PT RECEIVED IV LEVOFLOXACIN FROM 29-NOV-2004 AND SWITCHED TO ORAL THERAPY ON 02-DEC-2004.
     Route: 048
     Dates: start: 20041129

REACTIONS (5)
  - ALANINE AMINOTRANSFERASE INCREASED [None]
  - ASPARTATE AMINOTRANSFERASE INCREASED [None]
  - BLOOD CREATINE PHOSPHOKINASE INCREASED [None]
  - MUSCLE INJURY [None]
  - MYOPATHY [None]
